FAERS Safety Report 14743779 (Version 1)
Quarter: 2018Q2

REPORT INFORMATION
  Report Type: Spontaneous
  Country: CA (occurrence: CA)
  Receive Date: 20180410
  Receipt Date: 20180410
  Transmission Date: 20180711
  Serious: Yes (Other)
  Sender: FDA-Public Use
  Company Number: CA-TEVA-2018-CA-878692

PATIENT
  Age: 65 Year
  Sex: Female
  Weight: 115 kg

DRUGS (3)
  1. CRESTOR - 10MG [Concomitant]
  2. RABEPRAZOLE [Concomitant]
     Active Substance: RABEPRAZOLE
  3. RATIO-IRBESARTAN [Suspect]
     Active Substance: IRBESARTAN
     Route: 048

REACTIONS (2)
  - Product substitution issue [Recovered/Resolved]
  - Headache [Recovered/Resolved]
